FAERS Safety Report 5678014-3 (Version None)
Quarter: 2008Q1

REPORT INFORMATION
  Report Type: 
  Country: None (occurrence: None)
  Receive Date: 20080324
  Receipt Date: 20080324
  Transmission Date: 20080703
  Serious: Yes (Life-Threatening, Disabling, Other)
  Sender: FDA-Public Use
  Company Number: None

PATIENT
  Age: 92 Year
  Sex: Female
  Weight: 43.9989 kg

DRUGS (1)
  1. DURAGESIC-50 [Suspect]
     Indication: BACK PAIN
     Dosage: 50MCG/HR  1 PATCH  TRANSDERMAL
     Route: 062
     Dates: start: 20071222, end: 20071223

REACTIONS (11)
  - COMA [None]
  - DELIRIUM [None]
  - HYPOXIA [None]
  - ILL-DEFINED DISORDER [None]
  - LOSS OF CONSCIOUSNESS [None]
  - MEDICATION ERROR [None]
  - MUSCLE SPASMS [None]
  - NERVOUS SYSTEM DISORDER [None]
  - OVERDOSE [None]
  - OXYGEN SATURATION DECREASED [None]
  - SEDATION [None]
